FAERS Safety Report 19806517 (Version 4)
Quarter: 2021Q3

REPORT INFORMATION
  Report Type: Report from Study
  Country: PL (occurrence: PL)
  Receive Date: 20210908
  Receipt Date: 20210930
  Transmission Date: 20211014
  Serious: Yes (Death)
  Sender: FDA-Public Use
  Company Number: PL-AMGEN-POLCT2021135454

PATIENT
  Age: 83 Year
  Sex: Male
  Weight: 126 kg

DRUGS (6)
  1. INSULIN [Concomitant]
     Active Substance: INSULIN NOS
     Dosage: UNK
  2. EVOLOCUMAB [Suspect]
     Active Substance: EVOLOCUMAB
     Indication: DYSLIPIDAEMIA
     Dosage: 1 MILLILITER
     Route: 058
     Dates: start: 20160908
  3. ROSUVASTATINUM [Concomitant]
     Active Substance: ROSUVASTATIN
     Indication: DYSLIPIDAEMIA
     Dosage: 10 MILLIGRAM
     Dates: start: 201303
  4. ASPIRIN [ACETYLSALICYLIC ACID] [Concomitant]
     Active Substance: ASPIRIN
     Dosage: UNK
  5. TORASEMIDUM [Concomitant]
     Dosage: 10 MILLIGRAM
     Dates: start: 20111026
  6. KALII CHLORIDUM [Concomitant]
     Dosage: 600 MILLIGRAM
     Dates: start: 20111026

REACTIONS (1)
  - Death [Fatal]

NARRATIVE: CASE EVENT DATE: 20210831
